FAERS Safety Report 23397216 (Version 2)
Quarter: 2024Q2

REPORT INFORMATION
  Report Type: Spontaneous
  Country: IT (occurrence: IT)
  Receive Date: 20240112
  Receipt Date: 20240402
  Transmission Date: 20240716
  Serious: Yes (Other)
  Sender: FDA-Public Use
  Company Number: None

PATIENT
  Age: 94 Year
  Sex: Female

DRUGS (9)
  1. ELIQUIS [Suspect]
     Active Substance: APIXABAN
     Indication: Atrial fibrillation
     Dosage: ELIQUIS*60CPR RIV 5MG -DOSING SCHEDULE: 2 TABLETS/DAY -ON 11/02/2023 DOSE REDUCTION TO ELIQUIS*60CPR
     Route: 048
  2. ELIQUIS [Suspect]
     Active Substance: APIXABAN
     Dosage: ELIQUIS*60CPR RIV 5MG -DOSING SCHEDULE: 2 TABLETS/DAY -ON 11/02/2023 DOSE REDUCTION TO ELIQUIS*60CPR
     Route: 048
     Dates: start: 20230211
  3. OMEPRAZOLE [Concomitant]
     Active Substance: OMEPRAZOLE
     Indication: Gastrooesophageal reflux disease
     Dosage: OMEPRAZEN*28CPS 10MG -1 TABLET/DAY IN THE MORNING
     Route: 048
     Dates: start: 2023
  4. ALLOPURINOL [Concomitant]
     Active Substance: ALLOPURINOL
     Indication: Hyperuricaemia
     Dosage: ALLOPURINOL TEVA*30CPR 300MG -1 TABLET/DAY BEFORE LUNCH
     Route: 048
     Dates: start: 2023
  5. FUROSEMIDE [Concomitant]
     Active Substance: FUROSEMIDE
     Indication: Myocardial ischaemia
     Dosage: FUROSEMIDE MY*30CPR 25MG -1 TABLET/DAY IN THE MORNING
     Route: 048
     Dates: start: 2023
  6. MIRTAZAPINE [Concomitant]
     Active Substance: MIRTAZAPINE
     Indication: Major depression
     Dosage: MIRTAZAPINE MY*30CPR OROD 30MG -? TABLET/DAY IN THE EVENING
     Route: 048
     Dates: start: 2023
  7. FENOFIBRATO DOC [Concomitant]
     Indication: Hypertriglyceridaemia
     Dosage: DOC*30CPR 145MG PHENOFIBRATE -1 TABLET/DAY IN THE EVENING
     Route: 048
     Dates: start: 2023
  8. BISOPROLOL FUMARATE [Concomitant]
     Active Substance: BISOPROLOL FUMARATE
     Indication: Myocardial ischaemia
     Dosage: BISOPROLOLE SAN*28CPR RIV 1.25MG -1 TABLET/DAY IN THE AFTERNOON
     Route: 048
     Dates: start: 2023
  9. RAMIPRIL [Concomitant]
     Active Substance: RAMIPRIL
     Indication: Myocardial ischaemia
     Dosage: RAMIPRIL MY*28CPR 10MG -1/2 CP/DAY IN THE MORNING
     Route: 048
     Dates: start: 2023

REACTIONS (3)
  - Blood creatinine increased [Not Recovered/Not Resolved]
  - Glomerular filtration rate decreased [Not Recovered/Not Resolved]
  - Chronic kidney disease [Not Recovered/Not Resolved]

NARRATIVE: CASE EVENT DATE: 20221201
